FAERS Safety Report 12319976 (Version 1)
Quarter: 2016Q2

REPORT INFORMATION
  Report Type: Spontaneous
  Country: US (occurrence: US)
  Receive Date: 20160429
  Receipt Date: 20160429
  Transmission Date: 20160815
  Serious: No
  Sender: FDA-Public Use
  Company Number: US-ROCHE-1683555

PATIENT
  Sex: Female

DRUGS (1)
  1. AVASTIN [Suspect]
     Active Substance: BEVACIZUMAB
     Indication: BRAIN NEOPLASM MALIGNANT
     Dosage: FORM STRENGTH: 25 MG/ML
     Route: 042
     Dates: start: 20151203

REACTIONS (4)
  - Erythema [Unknown]
  - Flushing [Unknown]
  - Nausea [Unknown]
  - Decreased appetite [Unknown]
